FAERS Safety Report 11671770 (Version 1)
Quarter: 2015Q4

REPORT INFORMATION
  Report Type: Spontaneous
  Country: US (occurrence: US)
  Receive Date: 20151027
  Receipt Date: 20151027
  Transmission Date: 20160304
  Serious: No
  Sender: FDA-Public Use
  Company Number: US-ELI_LILLY_AND_COMPANY-US201006003217

PATIENT
  Sex: Female

DRUGS (1)
  1. FORTEO [Suspect]
     Active Substance: TERIPARATIDE
     Dosage: 20 UG, UNK

REACTIONS (13)
  - Nausea [Unknown]
  - Eating disorder [Unknown]
  - Feeling cold [Unknown]
  - Heart rate increased [Unknown]
  - Burning sensation [Unknown]
  - Dysgeusia [Unknown]
  - Discomfort [Unknown]
  - Abdominal pain [Unknown]
  - Dry mouth [Unknown]
  - Sleep disorder [Unknown]
  - Pulse pressure increased [Unknown]
  - Dyspnoea [Unknown]
  - Formication [Unknown]
